FAERS Safety Report 7931703-X (Version None)
Quarter: 2011Q4

REPORT INFORMATION
  Report Type: 
  Country: None (occurrence: None)
  Receive Date: 20111121
  Receipt Date: 20111115
  Transmission Date: 20120403
  Serious: Yes (Life-Threatening, Hospitalization, Other)
  Sender: FDA-Public Use
  Company Number: PHHO2011US05317

PATIENT
  Sex: Male

DRUGS (11)
  1. SAXAGLIPTIN [Concomitant]
  2. VERAPAMIL [Suspect]
  3. FUROSEMIDE [Suspect]
  4. ALDOSTERONE [Concomitant]
  5. ANTICOAGULANTS [Concomitant]
  6. METOPROLOL TARTRATE [Suspect]
  7. ANGIOTENSIN CONVERTING ENZYME BLOCKERS [Concomitant]
  8. DIOVAN [Suspect]
  9. INSULIN GLARGINE [Concomitant]
  10. DIURETICS [Concomitant]
  11. BETA BLOCKING AGENTS [Concomitant]

REACTIONS (5)
  - BRADYCARDIA [None]
  - HYPOXIA [None]
  - HYPERKALAEMIA [None]
  - ASTHENIA [None]
  - RENAL FAILURE ACUTE [None]
